FAERS Safety Report 6964131-4 (Version None)
Quarter: 2010Q3

REPORT INFORMATION
  Report Type: 
  Country: None (occurrence: None)
  Receive Date: 20100903
  Receipt Date: 20100826
  Transmission Date: 20110219
  Serious: Yes (Other)
  Sender: FDA-Public Use
  Company Number: US-ASTRAZENECA-2007UW21513

PATIENT
  Age: 48 Year
  Sex: Female
  Weight: 98 kg

DRUGS (24)
  1. SEROQUEL [Suspect]
     Indication: ANXIETY
     Route: 048
     Dates: start: 20040101, end: 20061101
  2. SEROQUEL [Suspect]
     Indication: DEPRESSION
     Route: 048
     Dates: start: 20040101, end: 20061101
  3. SEROQUEL [Suspect]
     Indication: BIPOLAR DISORDER
     Route: 048
     Dates: start: 20040101, end: 20061101
  4. SEROQUEL [Suspect]
     Indication: MAJOR DEPRESSION
     Route: 048
     Dates: start: 20040101, end: 20061101
  5. SEROQUEL [Suspect]
     Indication: ANXIETY DISORDER
     Route: 048
     Dates: start: 20040101, end: 20061101
  6. SEROQUEL [Suspect]
     Route: 048
     Dates: start: 20050818, end: 20051215
  7. SEROQUEL [Suspect]
     Route: 048
     Dates: start: 20050818, end: 20051215
  8. SEROQUEL [Suspect]
     Route: 048
     Dates: start: 20050818, end: 20051215
  9. SEROQUEL [Suspect]
     Route: 048
     Dates: start: 20050818, end: 20051215
  10. SEROQUEL [Suspect]
     Route: 048
     Dates: start: 20050818, end: 20051215
  11. SEROQUEL [Suspect]
     Dosage: 100-300 MG
     Route: 048
     Dates: start: 20040601, end: 20051101
  12. SEROQUEL [Suspect]
     Dosage: 100-300 MG
     Route: 048
     Dates: start: 20040601, end: 20051101
  13. SEROQUEL [Suspect]
     Dosage: 100-300 MG
     Route: 048
     Dates: start: 20040601, end: 20051101
  14. SEROQUEL [Suspect]
     Dosage: 100-300 MG
     Route: 048
     Dates: start: 20040601, end: 20051101
  15. SEROQUEL [Suspect]
     Dosage: 100-300 MG
     Route: 048
     Dates: start: 20040601, end: 20051101
  16. SEROQUEL [Suspect]
     Route: 048
     Dates: start: 20051101
  17. SEROQUEL [Suspect]
     Route: 048
     Dates: start: 20051101
  18. SEROQUEL [Suspect]
     Route: 048
     Dates: start: 20051101
  19. SEROQUEL [Suspect]
     Route: 048
     Dates: start: 20051101
  20. SEROQUEL [Suspect]
     Route: 048
     Dates: start: 20051101
  21. XANAX [Concomitant]
     Dosage: 4-6 MG
     Dates: start: 20050818
  22. ARICEPT [Concomitant]
     Dates: start: 20051215
  23. ABILIFY [Concomitant]
     Dates: start: 20080101
  24. NAMENDA [Concomitant]
     Indication: AMNESIA
     Dosage: 5 TO 10 MG DAILY
     Dates: start: 20051101

REACTIONS (13)
  - BLOOD CHOLESTEROL INCREASED [None]
  - BLOOD GLUCOSE INCREASED [None]
  - BLOOD TRIGLYCERIDES INCREASED [None]
  - CARDIAC DISORDER [None]
  - DIABETES MELLITUS [None]
  - DIABETIC COMPLICATION [None]
  - FALL [None]
  - HYPERLIPIDAEMIA [None]
  - MYALGIA [None]
  - NEUROPATHY PERIPHERAL [None]
  - OBESITY [None]
  - TARDIVE DYSKINESIA [None]
  - TYPE 1 DIABETES MELLITUS [None]
